FAERS Safety Report 25009038 (Version 1)
Quarter: 2025Q1

REPORT INFORMATION
  Report Type: Spontaneous
  Country: US (occurrence: None)
  Receive Date: 20250224
  Receipt Date: 20250224
  Transmission Date: 20250408
  Serious: Yes (Life-Threatening, Hospitalization)
  Sender: FDA-CTU
  Company Number: None

PATIENT
  Age: 82 Year
  Sex: Male

DRUGS (1)
  1. APIXABAN [Suspect]
     Active Substance: APIXABAN

REACTIONS (7)
  - Fall [None]
  - Head injury [None]
  - Cerebral haemorrhage [None]
  - Hypertension [None]
  - Subarachnoid haemorrhage [None]
  - Intraventricular haemorrhage [None]
  - Dysphagia [None]

NARRATIVE: CASE EVENT DATE: 20231204
